FAERS Safety Report 4632345-4 (Version None)
Quarter: 2005Q2

REPORT INFORMATION
  Report Type: 
  Country: None (occurrence: None)
  Receive Date: 20050411
  Receipt Date: 20041215
  Transmission Date: 20051028
  Serious: Yes (Hospitalization, Other)
  Sender: FDA-Public Use
  Company Number: PHEH2004US13376

PATIENT
  Age: 57 Year
  Sex: Female
  Weight: 71 kg

DRUGS (18)
  1. ZOMETA [Suspect]
     Indication: MULTIPLE MYELOMA
     Dosage: UNK, UNK
     Dates: start: 20010101
  2. THALIDOMIDE [Concomitant]
     Indication: MULTIPLE MYELOMA
     Dosage: 50 MG, QD
     Dates: start: 20040801
  3. DECADRON [Concomitant]
     Dosage: 18 MG INTERMMITTENT DOSING
     Dates: start: 20040101
  4. ASPIRIN [Concomitant]
  5. VITAMIN B6 [Concomitant]
  6. IG GAMMA [Concomitant]
     Dosage: MONTHLY
     Route: 042
  7. VIOXX [Concomitant]
  8. NEURONTIN [Concomitant]
     Indication: NEUROPATHY
     Dosage: 600 MG, TID
  9. EFFEXOR [Concomitant]
     Dosage: 75 MG, QHS
  10. MIRAPEX [Concomitant]
     Dosage: 1.25 MG, QD
  11. THYROID TAB [Concomitant]
     Dosage: 1 G, QD
  12. ADVIL [Concomitant]
     Dosage: Q 12 H PRN
  13. ULTRAM [Concomitant]
     Dosage: DAILY
  14. FENTANYL [Concomitant]
     Dosage: 75 MCG ONCE
  15. VERSED [Concomitant]
     Dosage: 5MG ONCE
     Route: 042
  16. IMITREX [Concomitant]
  17. TRAMADOL HCL [Concomitant]
  18. MULTIVITAMIN PREPARATIONS WITH OR W/O MINERAL [Concomitant]

REACTIONS (39)
  - ACTINOMYCOSIS [None]
  - ALPHA 2 GLOBULIN INCREASED [None]
  - APHTHOUS STOMATITIS [None]
  - APTYALISM [None]
  - ARTIFICIAL CROWN PROCEDURE [None]
  - ASTHENIA [None]
  - BLOOD ALBUMIN DECREASED [None]
  - BLOOD IMMUNOGLOBULIN A DECREASED [None]
  - BLOOD IMMUNOGLOBULIN M DECREASED [None]
  - BLOOD PHOSPHORUS INCREASED [None]
  - BONE DISORDER [None]
  - CHEST DISCOMFORT [None]
  - CHRONIC SINUSITIS [None]
  - DISEASE PROGRESSION [None]
  - DIZZINESS [None]
  - DYSPEPSIA [None]
  - FATIGUE [None]
  - HAEMATOCRIT DECREASED [None]
  - HAEMOGLOBIN DECREASED [None]
  - HEADACHE [None]
  - HEARING IMPAIRED [None]
  - HYPOAESTHESIA [None]
  - INFECTION [None]
  - MOUTH ULCERATION [None]
  - MUCOSAL INFLAMMATION [None]
  - MULTIPLE MYELOMA [None]
  - MYALGIA [None]
  - NASAL DISORDER [None]
  - NAUSEA [None]
  - NEUROPATHY [None]
  - ORAL PAIN [None]
  - OSTEONECROSIS [None]
  - PNEUMONIA LIPOID [None]
  - PNEUMONITIS [None]
  - PULMONARY HAEMORRHAGE [None]
  - PYREXIA [None]
  - RED BLOOD CELL COUNT DECREASED [None]
  - RED CELL DISTRIBUTION WIDTH INCREASED [None]
  - WEIGHT INCREASED [None]
